FAERS Safety Report 10161671 (Version 1)
Quarter: 2014Q2

REPORT INFORMATION
  Report Type: Spontaneous
  Country: FR (occurrence: None)
  Receive Date: 20140507
  Receipt Date: 20140507
  Transmission Date: 20141212
  Serious: Yes (Hospitalization)
  Sender: FDA-Public Use
  Company Number: FK201401592

PATIENT
  Age: 47 Year
  Sex: Male

DRUGS (7)
  1. PACLITAXEL 6MG/ML CONCENTRATE FOR SOLUTION FOR INFUSION (PACLITAXEL) (PACLITAXEL) [Suspect]
     Indication: ANGIOSARCOMA
     Dates: start: 20140115, end: 20140129
  2. VOLTARENE EMULGEL (DICLOFENAC SODIUM) (DICLOFENAC SODIUM) [Suspect]
     Indication: BACK PAIN
  3. VOLTARENE (DICLOFENAC SODIUM) (DICLOFENAC SODIUM) [Suspect]
     Indication: BACK PAIN
     Route: 048
  4. SUBUTEX (BUPRENORPHINE HYDROCHLORIDE) [Concomitant]
  5. SOLUPRED (PREDNISOLONE) [Concomitant]
  6. INEXIUM (ESOMEPRAZOLE MAGNESIUM) (ESOMEPRAZOLE MAGNESIUM) [Concomitant]
  7. ACUPAN (NEFOPAM HYDROCHLORIDE) [Concomitant]

REACTIONS (3)
  - Staphylococcal infection [None]
  - Endocarditis [None]
  - Metastasis [None]
